FAERS Safety Report 8600516-8 (Version None)
Quarter: 2012Q3

REPORT INFORMATION
  Report Type: 
  Country: None (occurrence: None)
  Receive Date: 20120808
  Receipt Date: 20120808
  Transmission Date: 20120928
  Serious: No
  Sender: FDA-Public Use
  Company Number: None

PATIENT
  Sex: Female

DRUGS (1)
  1. BACITRACIN [Suspect]
     Dosage: APPLY TO LEFT EYE, TWICE DAILY
     Dates: start: 20120628

REACTIONS (3)
  - OCULAR HYPERAEMIA [None]
  - PAIN [None]
  - EYE PAIN [None]
